FAERS Safety Report 4402756-0 (Version None)
Quarter: 2004Q3

REPORT INFORMATION
  Report Type: 
  Country: None (occurrence: None)
  Receive Date: 20040720
  Receipt Date: 20040720
  Transmission Date: 20050211
  Serious: Yes (Life-Threatening)
  Sender: FDA-Public Use
  Company Number: None

PATIENT
  Sex: Male
  Weight: 72.5755 kg

DRUGS (4)
  1. ADDERALL 10 [Suspect]
     Indication: ATTENTION DEFICIT/HYPERACTIVITY DISORDER
     Dosage: 2X PER ORAL
     Route: 048
     Dates: start: 20010910, end: 20020810
  2. ADDERALL 10 [Suspect]
     Indication: HYPOKINESIA
     Dosage: 2X PER ORAL
     Route: 048
     Dates: start: 20010910, end: 20020810
  3. ADDERALL XR 30 [Suspect]
     Indication: ATTENTION DEFICIT/HYPERACTIVITY DISORDER
     Dosage: MORNING ORAL
     Route: 048
     Dates: start: 20020910, end: 20030810
  4. ADDERALL XR 30 [Suspect]
     Indication: HYPOKINESIA
     Dosage: MORNING ORAL
     Route: 048
     Dates: start: 20020910, end: 20030810

REACTIONS (4)
  - CARDIAC MONITORING [None]
  - HEART RATE INCREASED [None]
  - HEART RATE IRREGULAR [None]
  - PALPITATIONS [None]
